FAERS Safety Report 8573447-X (Version None)
Quarter: 2012Q3

REPORT INFORMATION
  Report Type: 
  Country: None (occurrence: None)
  Receive Date: 20120806
  Receipt Date: 20120731
  Transmission Date: 20120928
  Serious: Yes (Other)
  Sender: FDA-Public Use
  Company Number: DE-PFIZER INC-2012184758

PATIENT
  Age: 36 Year
  Sex: Male
  Weight: 70 kg

DRUGS (1)
  1. LYRICA [Suspect]
     Indication: ANXIETY
     Dosage: 300 MG, 20 TIMES DAILY
     Route: 048

REACTIONS (5)
  - INTENTIONAL OVERDOSE [None]
  - DEFAECATION URGENCY [None]
  - DRY MOUTH [None]
  - PRE-EXISTING CONDITION IMPROVED [None]
  - THERAPEUTIC RESPONSE UNEXPECTED [None]
